FAERS Safety Report 13175641 (Version 9)
Quarter: 2018Q1

REPORT INFORMATION
  Report Type: Report from Study
  Country: BR (occurrence: BR)
  Receive Date: 20170201
  Receipt Date: 20180330
  Transmission Date: 20180508
  Serious: Yes (Hospitalization, Other)
  Sender: FDA-Public Use
  Company Number: BR-SA-2017SA013369

PATIENT
  Age: 32 Year
  Sex: Female
  Weight: 64 kg

DRUGS (9)
  1. LEXOTAN [Concomitant]
     Active Substance: BROMAZEPAM
     Route: 048
     Dates: start: 20170116, end: 20170116
  2. SOLU-MEDROL [Concomitant]
     Active Substance: METHYLPREDNISOLONE SODIUM SUCCINATE
     Route: 042
     Dates: start: 20170116, end: 20170119
  3. ANSENTRON [Concomitant]
     Route: 042
     Dates: start: 20170116, end: 20170116
  4. ACYCLOVIR. [Concomitant]
     Active Substance: ACYCLOVIR
     Route: 048
     Dates: start: 20170116, end: 20170123
  5. LEMTRADA [Suspect]
     Active Substance: ALEMTUZUMAB
     Indication: MULTIPLE SCLEROSIS
     Route: 041
     Dates: start: 20170116, end: 20170120
  6. LEMTRADA [Suspect]
     Active Substance: ALEMTUZUMAB
     Indication: MULTIPLE SCLEROSIS
     Route: 041
  7. LIORESAL [Concomitant]
     Active Substance: BACLOFEN
     Route: 048
  8. CLEXANE [Concomitant]
     Active Substance: ENOXAPARIN SODIUM
     Route: 058
     Dates: start: 20170116, end: 20170123
  9. PANTOZOL [Concomitant]
     Active Substance: PANTOPRAZOLE SODIUM
     Route: 048
     Dates: start: 20170116, end: 20170122

REACTIONS (16)
  - Anaemia [Not Recovered/Not Resolved]
  - Blood pressure fluctuation [Not Recovered/Not Resolved]
  - Dermatitis allergic [Not Recovered/Not Resolved]
  - Cough [Recovered/Resolved]
  - Palpitations [Not Recovered/Not Resolved]
  - Neuritis [Not Recovered/Not Resolved]
  - Headache [Recovering/Resolving]
  - Ligament sprain [Not Recovered/Not Resolved]
  - Foot fracture [Not Recovered/Not Resolved]
  - Abdominal pain upper [Not Recovered/Not Resolved]
  - Headache [Not Recovered/Not Resolved]
  - Subcutaneous haematoma [Not Recovered/Not Resolved]
  - Arthralgia [Not Recovered/Not Resolved]
  - Respiratory tract infection [Recovered/Resolved]
  - Immunodeficiency [Not Recovered/Not Resolved]
  - Pruritus [Recovered/Resolved]

NARRATIVE: CASE EVENT DATE: 2017
